FAERS Safety Report 8021842-X (Version None)
Quarter: 2012Q1

REPORT INFORMATION
  Report Type: 
  Country: None (occurrence: None)
  Receive Date: 20120104
  Receipt Date: 20111229
  Transmission Date: 20120608
  Serious: Yes (Other)
  Sender: FDA-Public Use
  Company Number: ES-ELI_LILLY_AND_COMPANY-ES201112007711

PATIENT
  Sex: Female
  Weight: 80 kg

DRUGS (5)
  1. PANTOPRAZOLE [Concomitant]
     Indication: PROPHYLAXIS
     Dosage: 1 DF, QD
     Route: 048
  2. LEXATIN [Concomitant]
     Indication: ANXIETY
     Dosage: 6 MG, QD
     Route: 048
  3. FORTEO [Suspect]
     Indication: OSTEOPOROSIS
     Dosage: 20 UG, QD
     Route: 058
     Dates: start: 20110831, end: 20111201
  4. LYRICA [Concomitant]
     Indication: PAIN
     Dosage: 300 MG, QD
     Route: 048
  5. HYDROMORPHONE HCL [Concomitant]
     Indication: PAIN
     Dosage: 32 MG, QD
     Route: 048

REACTIONS (1)
  - MULTIPLE MYELOMA [None]
